FAERS Safety Report 14517548 (Version 1)
Quarter: 2018Q1

REPORT INFORMATION
  Report Type: Spontaneous
  Country: US (occurrence: US)
  Receive Date: 20180212
  Receipt Date: 20180212
  Transmission Date: 20180509
  Serious: No
  Sender: FDA-Public Use
  Company Number: US-BAYER-2018-025402

PATIENT
  Age: 14 Year
  Sex: Female
  Weight: 49.89 kg

DRUGS (2)
  1. VENTOLIN [Concomitant]
     Active Substance: ALBUTEROL SULFATE
  2. CLARITIN [Suspect]
     Active Substance: LORATADINE
     Dosage: UNK
     Route: 048
     Dates: start: 20180206

REACTIONS (2)
  - Incorrect dose administered [Unknown]
  - Drug ineffective [None]

NARRATIVE: CASE EVENT DATE: 20180207
